FAERS Safety Report 19685156 (Version 4)
Quarter: 2021Q4

REPORT INFORMATION
  Report Type: Report from Study
  Country: BR (occurrence: BR)
  Receive Date: 20210811
  Receipt Date: 20211105
  Transmission Date: 20220303
  Serious: Yes (Other)
  Sender: FDA-Public Use
  Company Number: NVSC2021BR048571

PATIENT
  Age: 77 Year
  Sex: Female
  Weight: 64 kg

DRUGS (14)
  1. KISQALI [Suspect]
     Active Substance: RIBOCICLIB
     Indication: Product used for unknown indication
     Dosage: UNK
     Route: 065
     Dates: start: 202009
  2. KISQALI [Suspect]
     Active Substance: RIBOCICLIB
     Dosage: 3 DF (DAILY, 7 DAY BREAK)
     Route: 065
     Dates: start: 20201001
  3. KISQALI [Suspect]
     Active Substance: RIBOCICLIB
     Dosage: UNK
     Route: 065
     Dates: start: 20201001
  4. KISQALI [Suspect]
     Active Substance: RIBOCICLIB
     Dosage: 3 DF, QD
     Route: 048
  5. FEMARA [Suspect]
     Active Substance: LETROZOLE
     Indication: Product used for unknown indication
     Dosage: 1 DF, QD
     Route: 048
     Dates: start: 20201001
  6. SIMVASTATIN [Suspect]
     Active Substance: SIMVASTATIN
     Indication: Blood cholesterol
     Dosage: UNK
     Route: 048
     Dates: start: 202010
  7. SIMVASTATIN [Suspect]
     Active Substance: SIMVASTATIN
     Indication: Prophylaxis
  8. NAPRIX A [Concomitant]
     Indication: Blood pressure abnormal
     Dosage: UNK, QD
     Route: 048
  9. NAPRIX A [Concomitant]
     Indication: Heart rate abnormal
  10. ASPIRIN\DIHYDROXYALUMINUM AMINOACETATE ANHYDROUS\MAGNESIUM CARBONATE [Concomitant]
     Active Substance: ASPIRIN\DIHYDROXYALUMINUM AMINOACETATE ANHYDROUS\MAGNESIUM CARBONATE
     Indication: Blood pressure abnormal
     Dosage: UNK, QD
     Route: 048
  11. ASPIRIN\DIHYDROXYALUMINUM AMINOACETATE ANHYDROUS\MAGNESIUM CARBONATE [Concomitant]
     Active Substance: ASPIRIN\DIHYDROXYALUMINUM AMINOACETATE ANHYDROUS\MAGNESIUM CARBONATE
     Indication: Heart rate abnormal
  12. METOPROLOL SUCCINATE [Concomitant]
     Active Substance: METOPROLOL SUCCINATE
     Indication: Blood pressure abnormal
     Dosage: UNK, QD
     Route: 048
  13. METOPROLOL SUCCINATE [Concomitant]
     Active Substance: METOPROLOL SUCCINATE
     Indication: Heart rate abnormal
  14. MIRTAZAPINE [Concomitant]
     Active Substance: MIRTAZAPINE
     Indication: Depression
     Dosage: UNK, QD
     Route: 048

REACTIONS (23)
  - Bradycardia [Unknown]
  - Arrhythmia [Unknown]
  - Dementia [Unknown]
  - Taste disorder [Not Recovered/Not Resolved]
  - Eating disorder [Not Recovered/Not Resolved]
  - Discomfort [Recovering/Resolving]
  - Decreased appetite [Not Recovered/Not Resolved]
  - Nausea [Recovering/Resolving]
  - Anaemia [Unknown]
  - Blood pressure increased [Recovered/Resolved]
  - Dysphagia [Unknown]
  - General physical health deterioration [Unknown]
  - Blood pressure abnormal [Recovered/Resolved]
  - Anxiety [Unknown]
  - Heart rate decreased [Recovered/Resolved]
  - Confusional state [Unknown]
  - Depression [Unknown]
  - Cognitive disorder [Unknown]
  - Blood cholesterol abnormal [Unknown]
  - Blood pressure increased [Recovered/Resolved]
  - Fatigue [Unknown]
  - Blood creatinine abnormal [Recovered/Resolved]
  - Blood urea abnormal [Recovered/Resolved]

NARRATIVE: CASE EVENT DATE: 20210101
